FAERS Safety Report 14271518 (Version 3)
Quarter: 2018Q1

REPORT INFORMATION
  Report Type: Spontaneous
  Country: US (occurrence: US)
  Receive Date: 20171211
  Receipt Date: 20180208
  Transmission Date: 20180508
  Serious: Yes (Other)
  Sender: FDA-Public Use
  Company Number: US-BAYER-2017-234701

PATIENT
  Age: 50 Year
  Sex: Female
  Weight: 80.27 kg

DRUGS (2)
  1. MIRENA [Suspect]
     Active Substance: LEVONORGESTREL
     Indication: CONTRACEPTION
     Dosage: 20 MCG/24HR, CONT
     Route: 015
     Dates: start: 201002, end: 20171201
  2. MIRENA [Suspect]
     Active Substance: LEVONORGESTREL
     Indication: CONTRACEPTION

REACTIONS (4)
  - Device use issue [Recovered/Resolved with Sequelae]
  - Embedded device [Recovered/Resolved with Sequelae]
  - Device issue [Recovered/Resolved with Sequelae]
  - Device breakage [Recovered/Resolved with Sequelae]

NARRATIVE: CASE EVENT DATE: 20171201
